FAERS Safety Report 5193777-1 (Version None)
Quarter: 2006Q4

REPORT INFORMATION
  Report Type: 
  Country: None (occurrence: None)
  Receive Date: 20061221
  Receipt Date: 20061213
  Transmission Date: 20070319
  Serious: Yes (Hospitalization, Other)
  Sender: FDA-Public Use
  Company Number: 2005US000114

PATIENT
  Age: 36 Year
  Sex: Male
  Weight: 69.8 kg

DRUGS (10)
  1. PROGRAF [Suspect]
     Indication: PROPHYLAXIS AGAINST TRANSPLANT REJECTION
     Dosage: 8.5 MG , BID, ORAL
     Route: 048
     Dates: start: 20040630, end: 20050106
  2. ZENAPAX [Suspect]
     Indication: PROPHYLAXIS AGAINST TRANSPLANT REJECTION
     Dosage: 1.00 MG/KG
     Dates: start: 20040630, end: 20040830
  3. CELLCEPT [Suspect]
     Indication: PROPHYLAXIS AGAINST TRANSPLANT REJECTION
     Dosage: 500 MG, BID
  4. PREDNISONE TAB [Suspect]
     Indication: PROPHYLAXIS AGAINST TRANSPLANT REJECTION
     Dosage: 20 MG, UID/QD
  5. VALCYTE [Concomitant]
  6. SEPTRA [Concomitant]
  7. K-PHOS NEUTRAL [Concomitant]
  8. MAGNESIUM OXIDE [Concomitant]
  9. MYCELEX [Concomitant]
  10. ZANTAC [Concomitant]

REACTIONS (4)
  - HAEMATOCRIT DECREASED [None]
  - HAEMOGLOBIN DECREASED [None]
  - NEPHROPATHY [None]
  - NEPHROSCLEROSIS [None]
